FAERS Safety Report 25754047 (Version 1)
Quarter: 2025Q3

REPORT INFORMATION
  Report Type: Spontaneous
  Country: EU (occurrence: EU)
  Receive Date: 20250903
  Receipt Date: 20250903
  Transmission Date: 20251021
  Serious: Yes (Death, Other)
  Sender: AUROBINDO
  Company Number: EU-20250808-6d6ae9

PATIENT
  Age: 50 Year
  Sex: Male
  Weight: 44 kg

DRUGS (38)
  1. CARBOPLATIN [Suspect]
     Active Substance: CARBOPLATIN
     Indication: Non-small cell lung cancer
     Route: 042
     Dates: start: 20241218, end: 20241218
  2. CARBOPLATIN [Suspect]
     Active Substance: CARBOPLATIN
     Route: 042
     Dates: start: 20250108, end: 20250108
  3. CARBOPLATIN [Suspect]
     Active Substance: CARBOPLATIN
     Route: 042
     Dates: start: 20250130, end: 20250130
  4. CARBOPLATIN [Suspect]
     Active Substance: CARBOPLATIN
     Route: 042
     Dates: start: 20250227, end: 20250227
  5. PEMETREXED [Suspect]
     Active Substance: PEMETREXED
     Indication: Non-small cell lung cancer
     Route: 042
     Dates: start: 20241218, end: 20241218
  6. PEMETREXED [Suspect]
     Active Substance: PEMETREXED
     Route: 042
     Dates: start: 20250108, end: 20250108
  7. PEMETREXED [Suspect]
     Active Substance: PEMETREXED
     Route: 042
     Dates: start: 20250130, end: 20250130
  8. PEMETREXED [Suspect]
     Active Substance: PEMETREXED
     Route: 042
     Dates: start: 20250227, end: 20250227
  9. PEMETREXED [Suspect]
     Active Substance: PEMETREXED
     Route: 042
     Dates: start: 20250326, end: 20250326
  10. PEMETREXED [Suspect]
     Active Substance: PEMETREXED
     Route: 042
     Dates: start: 20250416, end: 20250416
  11. PEMETREXED [Suspect]
     Active Substance: PEMETREXED
     Route: 042
     Dates: start: 20250507, end: 20250507
  12. PEMETREXED [Suspect]
     Active Substance: PEMETREXED
     Route: 042
     Dates: start: 20250528, end: 20250528
  13. PEMETREXED [Suspect]
     Active Substance: PEMETREXED
     Route: 042
     Dates: start: 20250618, end: 20250618
  14. PEMETREXED [Suspect]
     Active Substance: PEMETREXED
     Route: 042
     Dates: start: 20250716, end: 20250716
  15. VUDALIMAB [Suspect]
     Active Substance: VUDALIMAB
     Indication: Non-small cell lung cancer
     Route: 042
     Dates: start: 20241218, end: 20241218
  16. VUDALIMAB [Suspect]
     Active Substance: VUDALIMAB
     Route: 042
     Dates: start: 20250108, end: 20250108
  17. VUDALIMAB [Suspect]
     Active Substance: VUDALIMAB
     Route: 042
     Dates: start: 20250130, end: 20250130
  18. VUDALIMAB [Suspect]
     Active Substance: VUDALIMAB
     Route: 042
     Dates: start: 20250227, end: 20250227
  19. VUDALIMAB [Suspect]
     Active Substance: VUDALIMAB
     Route: 042
     Dates: start: 20250326, end: 20250326
  20. VUDALIMAB [Suspect]
     Active Substance: VUDALIMAB
     Route: 042
     Dates: start: 20250416, end: 20250416
  21. VUDALIMAB [Suspect]
     Active Substance: VUDALIMAB
     Route: 042
     Dates: start: 20250507, end: 20250507
  22. VUDALIMAB [Suspect]
     Active Substance: VUDALIMAB
     Route: 042
     Dates: start: 20250528, end: 20250528
  23. VUDALIMAB [Suspect]
     Active Substance: VUDALIMAB
     Route: 042
     Dates: start: 20250618, end: 20250618
  24. VUDALIMAB [Suspect]
     Active Substance: VUDALIMAB
     Route: 042
     Dates: start: 20250716, end: 20250716
  25. URSODIOL [Concomitant]
     Active Substance: URSODIOL
     Indication: Product used for unknown indication
     Route: 065
     Dates: start: 20250121
  26. ZOLEDRONIC ACID [Concomitant]
     Active Substance: ZOLEDRONIC ACID
     Indication: Product used for unknown indication
     Route: 065
     Dates: start: 20250227
  27. TESTOSTERONE [Concomitant]
     Active Substance: TESTOSTERONE
     Indication: Product used for unknown indication
     Route: 065
     Dates: start: 20250707, end: 20250707
  28. FUSIDIC ACID [Concomitant]
     Active Substance: FUSIDIC ACID
     Indication: Product used for unknown indication
     Route: 065
     Dates: start: 20250715
  29. DEXAMETHASONE [Concomitant]
     Active Substance: DEXAMETHASONE
     Indication: Product used for unknown indication
     Route: 065
     Dates: start: 20250717, end: 20250720
  30. PALONOSETRON [Concomitant]
     Active Substance: PALONOSETRON
     Indication: Product used for unknown indication
     Route: 065
     Dates: start: 20250718, end: 20250718
  31. CLEMASTINE [Concomitant]
     Active Substance: CLEMASTINE
     Indication: Product used for unknown indication
     Route: 065
     Dates: start: 20250718, end: 20250718
  32. ACETAMINOPHEN [Concomitant]
     Active Substance: ACETAMINOPHEN
     Indication: Product used for unknown indication
     Route: 065
     Dates: start: 20250718, end: 20250718
  33. TAPENTADOL [Concomitant]
     Active Substance: TAPENTADOL
     Indication: Product used for unknown indication
     Route: 065
     Dates: start: 20241106
  34. ESOMEPRAZOLE [Concomitant]
     Active Substance: ESOMEPRAZOLE
     Indication: Product used for unknown indication
     Route: 065
     Dates: start: 20240910
  35. MORPHINE SULFATE [Concomitant]
     Active Substance: MORPHINE SULFATE
     Indication: Product used for unknown indication
     Route: 065
     Dates: start: 20241106
  36. OXAZEPAM [Concomitant]
     Active Substance: OXAZEPAM
     Indication: Product used for unknown indication
     Route: 065
     Dates: start: 20241106
  37. LACTULOSE [Concomitant]
     Active Substance: LACTULOSE
     Indication: Product used for unknown indication
     Route: 065
     Dates: start: 20241106
  38. FOLIC ACID [Concomitant]
     Active Substance: FOLIC ACID
     Indication: Product used for unknown indication
     Route: 065
     Dates: start: 20241211

REACTIONS (2)
  - Death [Fatal]
  - Hypophysitis [Unknown]

NARRATIVE: CASE EVENT DATE: 20250716
